FAERS Safety Report 5731908-2 (Version None)
Quarter: 2008Q2

REPORT INFORMATION
  Report Type: 
  Country: None (occurrence: None)
  Receive Date: 20080506
  Receipt Date: 20080506
  Transmission Date: 20081010
  Serious: Yes (Other)
  Sender: FDA-Public Use
  Company Number: None

PATIENT
  Sex: Male
  Weight: 79.3795 kg

DRUGS (1)
  1. LEVAQUIN [Suspect]
     Indication: EPIDIDYMITIS
     Dosage: 10 DAYS ONCE A DAY PO
     Route: 048
     Dates: start: 20050816, end: 20050826

REACTIONS (13)
  - ANXIETY [None]
  - FOOD INTOLERANCE [None]
  - GAIT DISTURBANCE [None]
  - HEADACHE [None]
  - IMPAIRED WORK ABILITY [None]
  - INSOMNIA [None]
  - MULTIPLE CHEMICAL SENSITIVITY [None]
  - NEUROPATHY PERIPHERAL [None]
  - PANIC ATTACK [None]
  - TENDON PAIN [None]
  - TINNITUS [None]
  - TREMOR [None]
  - VISUAL DISTURBANCE [None]
